FAERS Safety Report 4341674-3 (Version None)
Quarter: 2004Q2

REPORT INFORMATION
  Report Type: 
  Country: None (occurrence: None)
  Receive Date: 20040415
  Receipt Date: 20040331
  Transmission Date: 20050107
  Serious: Yes (Other)
  Sender: FDA-Public Use
  Company Number: GBS040414681

PATIENT
  Age: 61 Year
  Sex: Male

DRUGS (6)
  1. PERGOLIDE MESYLATE [Suspect]
     Indication: PARKINSON'S DISEASE
     Dosage: 1 MG/4 DAY
     Dates: start: 20000101, end: 20030324
  2. RAMIPRIL [Concomitant]
  3. ATENOLOL [Concomitant]
  4. SIMVASTATIN [Concomitant]
  5. GTN [Concomitant]
  6. ASPIRIN [Concomitant]

REACTIONS (4)
  - C-REACTIVE PROTEIN INCREASED [None]
  - CHEST X-RAY ABNORMAL [None]
  - INCREASED VISCOSITY OF BRONCHIAL SECRETION [None]
  - RED BLOOD CELL SEDIMENTATION RATE INCREASED [None]
